FAERS Safety Report 10049662 (Version 1)
Quarter: 2014Q1

REPORT INFORMATION
  Report Type: Spontaneous
  Country: US (occurrence: None)
  Receive Date: 20140331
  Receipt Date: 20140331
  Transmission Date: 20141002
  Serious: Yes (Other)
  Sender: FDA-Public Use
  Company Number: None

PATIENT
  Age: 34 Year
  Sex: Female
  Weight: 61.24 kg

DRUGS (1)
  1. ACE EXTREME 5000 DIET AID [Suspect]
     Indication: WEIGHT CONTROL
     Dosage: 1 PILL
     Route: 048
     Dates: start: 20140217, end: 20140217

REACTIONS (3)
  - Flushing [None]
  - Palpitations [None]
  - Nausea [None]
